FAERS Safety Report 23859430 (Version 2)
Quarter: 2024Q2

REPORT INFORMATION
  Report Type: Spontaneous
  Country: US (occurrence: US)
  Receive Date: 20240515
  Receipt Date: 20240625
  Transmission Date: 20240716
  Serious: No
  Sender: FDA-Public Use
  Company Number: US-ABBVIE-5761005

PATIENT
  Sex: Female

DRUGS (18)
  1. BOTOX [Suspect]
     Active Substance: ONABOTULINUMTOXINA
     Indication: Migraine
     Dosage: TIME INTERVAL: AS NECESSARY
     Route: 023
  2. HEMP [Concomitant]
     Active Substance: HEMP
     Indication: Product used for unknown indication
     Dosage: APPLY A SMALL AMOUNT TO AFFECTED AREA AS DIRECTED,  BEEHIVE
     Dates: start: 20230218
  3. HERBALS\WITHANIA SOMNIFERA ROOT [Concomitant]
     Active Substance: HERBALS\WITHANIA SOMNIFERA ROOT
     Indication: Product used for unknown indication
     Dosage: FORM STRENGTH: 1000 MILLIGRAMS
     Route: 048
     Dates: start: 20230218
  4. MAGNESIUM [Concomitant]
     Active Substance: MAGNESIUM
     Indication: Product used for unknown indication
     Dosage: FORM STRENGTH: 300 MILLIGRAMS
     Route: 048
     Dates: start: 20220901
  5. FAMOTIDINE [Concomitant]
     Active Substance: FAMOTIDINE
     Indication: Product used for unknown indication
     Dosage: FORM STRENGTH: 40 MILLIGRAMS
     Route: 048
     Dates: start: 20230615
  6. GLUCOSAMINE [Concomitant]
     Active Substance: GLUCOSAMINE
     Indication: Product used for unknown indication
     Dosage: FORM STRENGTH: 1500 MILLIGRAMS?HCL
     Route: 048
     Dates: start: 20220901
  7. IBUPROFEN [Concomitant]
     Active Substance: IBUPROFEN
     Indication: Product used for unknown indication
     Dosage: FORM STRENGTH: 800 MILLIGRAMS
     Route: 048
     Dates: start: 20230218
  8. MELATONIN [Concomitant]
     Active Substance: MELATONIN
     Indication: Product used for unknown indication
     Dosage: EVERY NIGHT, FORM STRENGTH: 5 MILLIGRAMS
     Route: 048
     Dates: start: 20220901
  9. Neuriva [Concomitant]
     Indication: Product used for unknown indication
     Route: 048
     Dates: start: 20230218
  10. TIZANIDINE [Concomitant]
     Active Substance: TIZANIDINE
     Indication: Product used for unknown indication
     Dosage: TAKE ONE OR TWO TABLET EVERY NIGHT,FORM STRENGTH: 2 MILLIGRAMS
     Route: 048
     Dates: start: 20230918
  11. OMEPRAZOLE [Concomitant]
     Active Substance: DONEPEZIL HYDROCHLORIDE\OMEPRAZOLE\OMEPRAZOLE MAGNESIUM
     Indication: Product used for unknown indication
     Route: 048
     Dates: start: 20230511
  12. GABAPENTIN [Concomitant]
     Active Substance: GABAPENTIN
     Indication: Product used for unknown indication
     Dosage: FORM STRENGTH: 100 MILLIGRAMS
     Route: 048
     Dates: start: 20230824
  13. BACLOFEN [Concomitant]
     Active Substance: BACLOFEN
     Indication: Product used for unknown indication
     Dosage: FORM STRENGTH: 5 MILLIGRAMS
     Route: 048
     Dates: start: 20240307
  14. QULIPTA [Concomitant]
     Active Substance: ATOGEPANT
     Indication: Product used for unknown indication
     Dosage: FORM STRENGTH: 60 MILLIGRAMS
     Route: 048
     Dates: start: 20230921
  15. LUBIPROSTONE [Concomitant]
     Active Substance: LUBIPROSTONE
     Indication: Product used for unknown indication
     Dosage: FORM STRENGTH: 8 MICRON
     Route: 048
     Dates: start: 20231206
  16. ROSUVASTATIN [Concomitant]
     Active Substance: ROSUVASTATIN
     Indication: Product used for unknown indication
     Dosage: FORM STRENGTH: 10 MILLIGRAMS
     Route: 048
     Dates: start: 20230615
  17. COLLAGEN BOVINE [Concomitant]
     Indication: Product used for unknown indication
     Dosage: APPLY 7.8GM ONCE A DAY?FORM STRENGTH: 7.8 MILLIGRAMS
     Dates: start: 20230218
  18. NURTEC ODT [Concomitant]
     Active Substance: RIMEGEPANT SULFATE
     Indication: Migraine
     Dosage: DISINTEGRATING TABLET
     Route: 048
     Dates: start: 20230731

REACTIONS (5)
  - Rash pruritic [Unknown]
  - Pruritus [Unknown]
  - Pyrexia [Unknown]
  - Hypersensitivity [Unknown]
  - Nausea [Unknown]
